FAERS Safety Report 4581312-8 (Version None)
Quarter: 2005Q1

REPORT INFORMATION
  Report Type: 
  Country: None (occurrence: None)
  Receive Date: 20050214
  Receipt Date: 20040923
  Transmission Date: 20050727
  Serious: No
  Sender: FDA-Public Use
  Company Number: US-GLAXOSMITHKLINE-A0527134A

PATIENT
  Age: 51 Year
  Sex: Male

DRUGS (4)
  1. LAMICTAL [Suspect]
     Indication: BIPOLAR DISORDER
     Dosage: 200MG PER DAY
     Route: 048
     Dates: start: 20040501, end: 20040822
  2. VASOTEC [Concomitant]
  3. HYDROCHLOROTHIAZIDE [Concomitant]
  4. TRICOR [Concomitant]

REACTIONS (3)
  - BLISTER [None]
  - DERMATITIS [None]
  - RASH GENERALISED [None]
